FAERS Safety Report 15084655 (Version 1)
Quarter: 2018Q2

REPORT INFORMATION
  Report Type: Spontaneous
  Country: IT (occurrence: NL)
  Receive Date: 20180628
  Receipt Date: 20180628
  Transmission Date: 20180711
  Serious: No
  Sender: FDA-Public Use
  Company Number: NL-AKRON, INC.-2050148

PATIENT
  Age: 42 Year
  Sex: Male

DRUGS (1)
  1. ZOSTRIX ORIGINAL STRENGTH [Suspect]
     Active Substance: CAPSAICIN
     Route: 048

REACTIONS (2)
  - Hepatitis toxic [Recovering/Resolving]
  - Jaundice [Recovering/Resolving]
